FAERS Safety Report 4340381-0 (Version None)
Quarter: 2004Q2

REPORT INFORMATION
  Report Type: 
  Country: None (occurrence: None)
  Receive Date: 20040414
  Receipt Date: 20040408
  Transmission Date: 20050107
  Serious: Yes (Death, Hospitalization)
  Sender: FDA-Public Use
  Company Number: 2004UW07193

PATIENT
  Age: 78 Year
  Sex: Male

DRUGS (2)
  1. IRESSA [Suspect]
     Dosage: 250 MG QD
     Dates: start: 20040301
  2. LISINOPRIL [Concomitant]

REACTIONS (1)
  - RHABDOMYOLYSIS [None]
